FAERS Safety Report 6800707-2 (Version None)
Quarter: 2010Q2

REPORT INFORMATION
  Report Type: 
  Country: None (occurrence: None)
  Receive Date: 20100629
  Receipt Date: 20100617
  Transmission Date: 20101027
  Serious: Yes (Other)
  Sender: FDA-Public Use
  Company Number: FR-JNJFOC-20100605679

PATIENT
  Age: 27 Year
  Sex: Female

DRUGS (5)
  1. REMICADE [Suspect]
     Indication: PSORIASIS
     Route: 042
  2. REMICADE [Suspect]
     Route: 042
  3. REMICADE [Suspect]
     Route: 042
  4. ESTROGEN-PROGESTERONE [Concomitant]
     Route: 048
  5. DERMOVAL [Concomitant]
     Dosage: ^SINCE THE END OF APR-2010 FOR 2-3 MONTHS^

REACTIONS (1)
  - ALOPECIA [None]
